FAERS Safety Report 17613561 (Version 3)
Quarter: 2020Q2

REPORT INFORMATION
  Report Type: Report from Study
  Country: US (occurrence: US)
  Receive Date: 20200402
  Receipt Date: 20200522
  Transmission Date: 20200713
  Serious: No
  Sender: FDA-Public Use
  Company Number: NVSC2020US085740

PATIENT
  Age: 12 Year
  Sex: Female

DRUGS (2)
  1. ILARIS [Suspect]
     Active Substance: CANAKINUMAB
     Indication: STILL^S DISEASE
     Dosage: 200 MG FOR EVERY 28 DAYS
     Route: 058
     Dates: start: 20180331
  2. ILARIS [Suspect]
     Active Substance: CANAKINUMAB
     Dosage: 200 MG, QMO
     Route: 058

REACTIONS (3)
  - Rash [Unknown]
  - Needle issue [Unknown]
  - Incorrect dose administered [Unknown]

NARRATIVE: CASE EVENT DATE: 20200326
